FAERS Safety Report 7024931-1 (Version None)
Quarter: 2010Q4

REPORT INFORMATION
  Report Type: 
  Country: None (occurrence: None)
  Receive Date: 20101001
  Receipt Date: 20100920
  Transmission Date: 20110411
  Serious: Yes (Hospitalization)
  Sender: FDA-Public Use
  Company Number: US-PFIZER INC-2009312764

PATIENT
  Sex: Male

DRUGS (27)
  1. DILANTIN-125 [Suspect]
     Indication: CONVULSION
     Dosage: 300 MG, AT BEDTIME
     Dates: start: 20091121
  2. DILANTIN-125 [Suspect]
     Dosage: 100 MILLIGRAM 3/1 DAY
     Dates: start: 20091121
  3. APIXABAN [Suspect]
     Indication: THROMBOSIS PROPHYLAXIS
     Dosage: 10 MG 1 DAY
     Route: 048
     Dates: start: 20090511
  4. WARFARIN SODIUM [Suspect]
     Indication: THROMBOSIS PROPHYLAXIS
     Dosage: 1 DF, 1X/DAY
     Route: 048
     Dates: start: 20090511
  5. PLACEBO [Suspect]
     Indication: THROMBOSIS PROPHYLAXIS
     Dosage: UNK
     Route: 048
     Dates: start: 20090511
  6. ALBUTEROL [Concomitant]
  7. ACETYLSALICYLIC ACID [Concomitant]
  8. CAPSAICIN [Concomitant]
  9. CITALOPRAM HYDROBROMIDE [Concomitant]
  10. CYCLOBENZAPRINE HYDROCHLORIDE [Concomitant]
  11. DIGOXIN [Concomitant]
  12. DILTIAZEM HYDROCHLORIDE [Concomitant]
  13. DOCUSATE [Concomitant]
  14. EPLERENONE [Concomitant]
  15. FERROUS SULFATE [Concomitant]
  16. FLUNISOLIDE [Concomitant]
  17. FORMOTEROL FUMARATE [Concomitant]
  18. FUROSEMIDE [Concomitant]
  19. INSULIN HUMAN [Concomitant]
  20. INSULIN ASPART [Concomitant]
  21. LOSARTAN [Concomitant]
  22. METOLAZONE [Concomitant]
  23. OMEPRAZOLE [Concomitant]
  24. POTASSIUM CHLORIDE [Concomitant]
  25. PRAVASTATIN SODIUM [Concomitant]
  26. GLUCOSE [Concomitant]
  27. PSYLLIUM [Concomitant]

REACTIONS (29)
  - ABNORMAL BEHAVIOUR [None]
  - ABSCESS [None]
  - ANTICONVULSANT DRUG LEVEL INCREASED [None]
  - APHASIA [None]
  - ATELECTASIS [None]
  - BLOOD ALKALINE PHOSPHATASE INCREASED [None]
  - BLOOD CHLORIDE DECREASED [None]
  - BLOOD CREATININE INCREASED [None]
  - BLOOD SODIUM DECREASED [None]
  - BRONCHOPNEUMONIA [None]
  - CEREBRAL ATROPHY [None]
  - CONFUSIONAL STATE [None]
  - DRUG LEVEL INCREASED [None]
  - DRUG TOXICITY [None]
  - DYSPNOEA [None]
  - EMOTIONAL DISORDER [None]
  - FLUID OVERLOAD [None]
  - HAEMATOCRIT DECREASED [None]
  - HAEMOGLOBIN INCREASED [None]
  - INFARCTION [None]
  - MENTAL STATUS CHANGES [None]
  - NEOPLASM [None]
  - PLEURAL EFFUSION [None]
  - PNEUMONIA [None]
  - PULMONARY OEDEMA [None]
  - SLEEP ATTACKS [None]
  - TRANSFUSION-RELATED ACUTE LUNG INJURY [None]
  - TREMOR [None]
  - VASCULAR DEMENTIA [None]
